FAERS Safety Report 8056368-0 (Version None)
Quarter: 2012Q1

REPORT INFORMATION
  Report Type: 
  Country: None (occurrence: None)
  Receive Date: 20120119
  Receipt Date: 20120117
  Transmission Date: 20120608
  Serious: Yes (Other)
  Sender: FDA-Public Use
  Company Number: AU-PFIZER INC-2012012130

PATIENT
  Age: 49 Year
  Sex: Male

DRUGS (1)
  1. VARENICLINE TARTRATE [Suspect]
     Dosage: STARTER PACK
     Dates: end: 20111201

REACTIONS (10)
  - PANIC ATTACK [None]
  - VERBAL ABUSE [None]
  - FEELING ABNORMAL [None]
  - LOSS OF CONSCIOUSNESS [None]
  - ANXIETY [None]
  - AGITATION [None]
  - SUICIDAL IDEATION [None]
  - PSYCHOTIC DISORDER [None]
  - HOMICIDAL IDEATION [None]
  - AGGRESSION [None]
